FAERS Safety Report 23140388 (Version 1)
Quarter: 2023Q4

REPORT INFORMATION
  Report Type: Other
  Country: BR (occurrence: None)
  Receive Date: 20231102
  Receipt Date: 20231102
  Transmission Date: 20240109
  Serious: Yes (Hospitalization)
  Sender: FDA-Public Use
  Company Number: BR-ROCHE-3447918

PATIENT
  Age: 22 Year
  Sex: Male

DRUGS (3)
  1. MYCOPHENOLATE MOFETIL [Suspect]
     Active Substance: MYCOPHENOLATE MOFETIL
     Indication: Prophylaxis against transplant rejection
     Dosage: PER DAY
     Route: 065
  2. TACROLIMUS [Suspect]
     Active Substance: TACROLIMUS
     Indication: Prophylaxis against transplant rejection
     Dosage: PER DAY
     Route: 065
  3. PREDNISONE [Suspect]
     Active Substance: PREDNISONE
     Indication: Prophylaxis against transplant rejection
     Dosage: PER DAY
     Route: 065

REACTIONS (5)
  - Disseminated varicella zoster virus infection [Recovered/Resolved]
  - COVID-19 [Recovered/Resolved]
  - Lung disorder [Recovered/Resolved]
  - Liver disorder [Recovered/Resolved]
  - Hepatosplenomegaly [Recovered/Resolved]
